FAERS Safety Report 9495100 (Version 1)
Quarter: 2013Q3

REPORT INFORMATION
  Report Type: Spontaneous
  Country: US (occurrence: US)
  Receive Date: 20130903
  Receipt Date: 20130903
  Transmission Date: 20140515
  Serious: Yes (Other)
  Sender: FDA-Public Use
  Company Number: US-ELI_LILLY_AND_COMPANY-US201308006411

PATIENT
  Sex: Female

DRUGS (6)
  1. DULOXETINE HYDROCHLORIDE [Suspect]
     Indication: DEPRESSION
     Dosage: 30 MG, QD
  2. DULOXETINE HYDROCHLORIDE [Suspect]
     Indication: BACK PAIN
     Dosage: 60 MG, QD
  3. DULOXETINE HYDROCHLORIDE [Suspect]
     Indication: PAIN
     Dosage: UNK, QOD
  4. DULOXETINE HYDROCHLORIDE [Suspect]
     Indication: ANXIETY
     Dosage: UNK, OTHER
  5. DULOXETINE HYDROCHLORIDE [Suspect]
     Indication: SCOLIOSIS
  6. DULOXETINE HYDROCHLORIDE [Suspect]
     Indication: OSTEOARTHRITIS

REACTIONS (10)
  - Hypertension [Unknown]
  - Rash pruritic [Not Recovered/Not Resolved]
  - Depression [Not Recovered/Not Resolved]
  - Hot flush [Not Recovered/Not Resolved]
  - Feeling cold [Not Recovered/Not Resolved]
  - Crying [Not Recovered/Not Resolved]
  - Influenza like illness [Not Recovered/Not Resolved]
  - Intentional drug misuse [Not Recovered/Not Resolved]
  - Paraesthesia [Not Recovered/Not Resolved]
  - Drug withdrawal syndrome [Not Recovered/Not Resolved]
